FAERS Safety Report 6429205-5 (Version None)
Quarter: 2009Q4

REPORT INFORMATION
  Report Type: 
  Country: None (occurrence: None)
  Receive Date: 20091105
  Receipt Date: 20091021
  Transmission Date: 20100525
  Serious: Yes (Other)
  Sender: FDA-Public Use
  Company Number: BR-GENENTECH-256847

PATIENT
  Age: 50 Year
  Sex: Female
  Weight: 60 kg

DRUGS (7)
  1. XOLAIR [Suspect]
     Indication: ASTHMA
     Dosage: 375 MG, Q15D
     Route: 059
     Dates: start: 20070101
  2. XOLAIR [Suspect]
     Dosage: 275 UNK, UNK
     Dates: start: 20080325
  3. SERETIDE [Concomitant]
     Indication: DRUG USE FOR UNKNOWN INDICATION
  4. DRUG [Concomitant]
     Indication: DRUG USE FOR UNKNOWN INDICATION
  5. METICORTEN [Concomitant]
     Indication: DRUG USE FOR UNKNOWN INDICATION
  6. SINGULAIR [Concomitant]
     Indication: DRUG USE FOR UNKNOWN INDICATION
  7. OMEPRAZOLE [Concomitant]
     Indication: DRUG USE FOR UNKNOWN INDICATION

REACTIONS (4)
  - DERMATITIS ALLERGIC [None]
  - HYPERSENSITIVITY [None]
  - LIP DISORDER [None]
  - PHARYNGEAL DISORDER [None]
